FAERS Safety Report 11767653 (Version 1)
Quarter: 2015Q4

REPORT INFORMATION
  Report Type: Spontaneous
  Country: US (occurrence: None)
  Receive Date: 20151120
  Receipt Date: 20151120
  Transmission Date: 20160304
  Serious: No
  Sender: FDA-Public Use
  Company Number: None

PATIENT
  Age: 50 Year
  Sex: Male
  Weight: 70.31 kg

DRUGS (6)
  1. HPV2 (VALACYCLOVIR HCL 1GM TAB) [Concomitant]
  2. MINOXIDIL. [Concomitant]
     Active Substance: MINOXIDIL
  3. CREAM FOR LEFT KNEE (HYDROCORTISONE 2.5% CREAM) [Concomitant]
  4. CIALIS (VARDENAFIL HCL 20 MG TAB) [Concomitant]
  5. MULIT-VITAMIN/MINERAL TABLET [Concomitant]
  6. FINASTERIDE. [Suspect]
     Active Substance: FINASTERIDE
     Indication: ALOPECIA
     Route: 048

REACTIONS (4)
  - Euphoric mood [None]
  - Erectile dysfunction [None]
  - Orgasmic sensation decreased [None]
  - Loss of libido [None]

NARRATIVE: CASE EVENT DATE: 20151119
